FAERS Safety Report 7280538-2 (Version None)
Quarter: 2011Q1

REPORT INFORMATION
  Report Type: 
  Country: None (occurrence: None)
  Receive Date: 20110208
  Receipt Date: 20100914
  Transmission Date: 20110831
  Serious: Yes (Other)
  Sender: FDA-Public Use
  Company Number: US-BAYER-201029830NA

PATIENT
  Sex: Female
  Weight: 90.703 kg

DRUGS (15)
  1. YASMIN [Suspect]
     Indication: CONTRACEPTION
  2. ZYPREXA [Concomitant]
     Dosage: 2.5 MG, QD
     Route: 048
     Dates: start: 20020101
  3. CELEXA [Concomitant]
     Indication: DEPRESSION
     Dosage: 20 MG, UNK
  4. SEROQUEL [Concomitant]
     Indication: DEPRESSION
     Dosage: 25 MG, UNK
     Dates: start: 20070101, end: 20080101
  5. MULTIVITAMIN PREPARATION + MINERAL SUPPLEMENT [Concomitant]
  6. YASMIN [Suspect]
     Indication: ACNE
     Dosage: UNK
     Dates: start: 20000101, end: 20080101
  7. PAXIL [Concomitant]
     Dosage: UNK
     Route: 048
     Dates: start: 20000101
  8. PAXIL [Concomitant]
     Dosage: 200 MG, QD
     Route: 048
     Dates: start: 20020101
  9. ZYPREXA [Concomitant]
     Dosage: UNK
     Route: 048
     Dates: start: 20000101
  10. POTASSION [Concomitant]
     Dosage: UNK
     Dates: start: 20080101
  11. WELLBUTRIN XL [Concomitant]
     Indication: DEPRESSION
     Dosage: 150 MG, UNK
  12. OCELLA [Suspect]
     Indication: ACNE
  13. MAXALT-MLT [Concomitant]
     Dosage: 10 MG, UNK
     Dates: start: 20030101
  14. IBUPROFEN [Concomitant]
  15. ZANTAC [Concomitant]
     Indication: IRRITABLE BOWEL SYNDROME
     Dosage: 150 MG, UNK

REACTIONS (10)
  - CHOLECYSTITIS CHRONIC [None]
  - CHOLESTEROSIS [None]
  - ABDOMINAL PAIN UPPER [None]
  - NAUSEA [None]
  - CEREBROVASCULAR ACCIDENT [None]
  - INJURY [None]
  - CHOLECYSTITIS ACUTE [None]
  - CHOLELITHIASIS [None]
  - VOMITING [None]
  - MAJOR DEPRESSION [None]
